FAERS Safety Report 23319552 (Version 1)
Quarter: 2023Q4

REPORT INFORMATION
  Report Type: Spontaneous
  Country: US (occurrence: None)
  Receive Date: 20231220
  Receipt Date: 20231220
  Transmission Date: 20240110
  Serious: No
  Sender: FDA-Public Use
  Company Number: US-ROCHE-3383572

PATIENT
  Age: 70 Year
  Sex: Female
  Weight: 71 kg

DRUGS (5)
  1. ACTIVASE [Suspect]
     Active Substance: ALTEPLASE
     Indication: Ischaemic stroke
     Dosage: THE INITIAL BOLUS DOSE WAS GIVEN AT 10:23 AM ;ONGOING: NO
     Route: 040
     Dates: start: 20230705, end: 20230705
  2. ACTIVASE [Suspect]
     Active Substance: ALTEPLASE
  3. ACTIVASE [Suspect]
     Active Substance: ALTEPLASE
     Dosage: 1 HOUR INFUSION STARTED AT 10:27 AM ;ONGOING: NO
     Route: 042
     Dates: start: 20230705, end: 20230705
  4. ACTIVASE [Suspect]
     Active Substance: ALTEPLASE
  5. SALINE [Concomitant]
     Active Substance: SODIUM CHLORIDE
     Route: 042
     Dates: start: 20230705

REACTIONS (2)
  - Vascular access site erythema [Not Recovered/Not Resolved]
  - Vascular access site swelling [Not Recovered/Not Resolved]

NARRATIVE: CASE EVENT DATE: 20230705
